FAERS Safety Report 7113411-0 (Version None)
Quarter: 2010Q4

REPORT INFORMATION
  Report Type: 
  Country: None (occurrence: None)
  Receive Date: 20101119
  Receipt Date: 20100923
  Transmission Date: 20110411
  Serious: No
  Sender: FDA-Public Use
  Company Number: A0876094A

PATIENT
  Age: 62 Year
  Sex: Male
  Weight: 96.4 kg

DRUGS (5)
  1. ARZERRA [Suspect]
     Indication: LYMPHOMA
     Dosage: 300MG PER DAY
     Route: 042
     Dates: start: 20100805
  2. ATIVAN [Concomitant]
     Indication: ANXIETY
     Dosage: 1MG PER DAY
     Route: 048
  3. TYLENOL (CAPLET) [Concomitant]
     Route: 048
  4. SOLU-MEDROL [Concomitant]
     Route: 042
  5. BENADRYL [Concomitant]
     Route: 042

REACTIONS (3)
  - INJECTION SITE REACTION [None]
  - PRURITUS [None]
  - URTICARIA [None]
